FAERS Safety Report 10176234 (Version 3)
Quarter: 2014Q3

REPORT INFORMATION
  Report Type: Spontaneous
  Country: US (occurrence: None)
  Receive Date: 20140514
  Receipt Date: 20140807
  Transmission Date: 20150326
  Serious: Yes (Hospitalization, Other)
  Sender: FDA-Public Use
  Company Number: AUR-APL-2014-05576

PATIENT
  Age: 83 Year
  Sex: Female
  Weight: 63 kg

DRUGS (6)
  1. ZOCOR [Suspect]
     Active Substance: SIMVASTATIN
     Indication: PRODUCT USED FOR UNKNOWN INDICATION
  2. SYNTHROID [Suspect]
     Active Substance: LEVOTHYROXINE SODIUM
     Indication: HYPOTHYROIDISM
     Dates: end: 2014
  3. TIKOSYN [Suspect]
     Active Substance: DOFETILIDE
     Indication: ATRIAL FIBRILLATION
     Route: 048
     Dates: start: 20140425, end: 20140519
  4. LISINOPRIL 10 MG [Suspect]
     Active Substance: LISINOPRIL
     Indication: HYPERTENSION
  5. WARFARIN (WARFARIN) [Suspect]
     Active Substance: WARFARIN
     Indication: PRODUCT USED FOR UNKNOWN INDICATION
     Dates: end: 2014
  6. METOPROLOL (METOPROLOL) [Concomitant]
     Active Substance: METOPROLOL

REACTIONS (9)
  - Hyperthyroidism [None]
  - Cardiac flutter [None]
  - Heart rate decreased [None]
  - Atrial fibrillation [None]
  - Drug ineffective [None]
  - Heart rate irregular [None]
  - Joint warmth [None]
  - Gait disturbance [None]
  - Blood pressure inadequately controlled [None]

NARRATIVE: CASE EVENT DATE: 201405
